FAERS Safety Report 7366869-6 (Version None)
Quarter: 2011Q1

REPORT INFORMATION
  Report Type: 
  Country: None (occurrence: None)
  Receive Date: 20110311
  Receipt Date: 20110224
  Transmission Date: 20110831
  Serious: Yes (Hospitalization)
  Sender: FDA-Public Use
  Company Number: 025872

PATIENT
  Sex: Female

DRUGS (2)
  1. CERTOLIZUMAB PEGOL (CERTOLIZUMAB PEGOL) [Suspect]
     Indication: SPONDYLITIS
     Dosage: SUBCUTANEOUS, SUBCUTANEOUS
     Route: 058
     Dates: end: 20110120
  2. CERTOLIZUMAB PEGOL (CERTOLIZUMAB PEGOL) [Suspect]
     Indication: SPONDYLITIS
     Dosage: SUBCUTANEOUS, SUBCUTANEOUS
     Route: 058
     Dates: start: 20110203

REACTIONS (2)
  - BRONCHOPNEUMONIA [None]
  - BRONCHITIS [None]
